FAERS Safety Report 17889671 (Version 4)
Quarter: 2020Q3

REPORT INFORMATION
  Report Type: Spontaneous
  Country: JP (occurrence: JP)
  Receive Date: 20200612
  Receipt Date: 20200902
  Transmission Date: 20201103
  Serious: Yes (Death)
  Sender: FDA-Public Use
  Company Number: JP-ASTRAZENECA-2020SE74790

PATIENT
  Age: 28419 Day
  Sex: Female
  Weight: 47 kg

DRUGS (6)
  1. LASIX [Concomitant]
     Active Substance: FUROSEMIDE
     Route: 048
     Dates: start: 20190610, end: 20200529
  2. DENOTAS [Concomitant]
     Active Substance: CALCIUM CARBONATE\CHOLECALCIFEROL\MAGNESIUM CARBONATE
     Route: 048
     Dates: start: 20190708, end: 20200522
  3. ALDACTONE A [Concomitant]
     Active Substance: SPIRONOLACTONE
     Route: 048
     Dates: start: 20190621, end: 20200529
  4. KEYTRUDA [Suspect]
     Active Substance: PEMBROLIZUMAB
     Indication: NON-SMALL CELL LUNG CANCER
     Route: 041
     Dates: start: 20200417, end: 20200417
  5. TAGRISSO [Suspect]
     Active Substance: OSIMERTINIB
     Indication: NON-SMALL CELL LUNG CANCER
     Route: 048
     Dates: start: 20190617, end: 20200416
  6. CALONAL [Concomitant]
     Active Substance: ACETAMINOPHEN
     Dosage: 400.0MG AS REQUIRED
     Route: 048
     Dates: start: 20190523, end: 20200529

REACTIONS (4)
  - Hydronephrosis [Fatal]
  - Postrenal failure [Fatal]
  - Retroperitoneal fibrosis [Fatal]
  - Malignant neoplasm progression [Fatal]

NARRATIVE: CASE EVENT DATE: 20200511
